FAERS Safety Report 25735840 (Version 3)
Quarter: 2025Q4

REPORT INFORMATION
  Report Type: Spontaneous
  Country: US (occurrence: US)
  Receive Date: 20250828
  Receipt Date: 20251007
  Transmission Date: 20260118
  Serious: Yes (Hospitalization)
  Sender: ELI LILLY AND COMPANY
  Company Number: US-ELI_LILLY_AND_COMPANY-US202508023436

PATIENT
  Age: 67 Year
  Sex: Female
  Weight: 61.6 kg

DRUGS (30)
  1. ALIMTA [Suspect]
     Active Substance: PEMETREXED DISODIUM
     Indication: Non-small cell lung cancer
     Dosage: 500 MG/M2, CYCLICAL
     Route: 042
     Dates: start: 20250519, end: 20250519
  2. ALIMTA [Suspect]
     Active Substance: PEMETREXED DISODIUM
     Dosage: 500 MG/M2, CYCLICAL
     Route: 042
     Dates: start: 20250609, end: 20250609
  3. ALIMTA [Suspect]
     Active Substance: PEMETREXED DISODIUM
     Dosage: 500 MG/M2, CYCLICAL
     Route: 042
     Dates: start: 20250722, end: 20250722
  4. PARAPLATIN [Suspect]
     Active Substance: CARBOPLATIN
     Indication: Non-small cell lung cancer
     Dosage: 500 MG/M2, CYCLICAL
     Route: 042
     Dates: start: 20250519, end: 20250519
  5. PARAPLATIN [Suspect]
     Active Substance: CARBOPLATIN
     Dosage: 510 MG/M2, CYCLICAL
     Route: 042
     Dates: start: 20250609, end: 20250609
  6. PARAPLATIN [Suspect]
     Active Substance: CARBOPLATIN
     Dosage: 420 MG/M2, CYCLICAL
     Route: 042
     Dates: start: 20250722, end: 20250722
  7. PEMBROLIZUMAB [Suspect]
     Active Substance: PEMBROLIZUMAB
     Indication: Non-small cell lung cancer
     Dosage: 200 MG, CYCLICAL
     Route: 042
     Dates: start: 20250519, end: 20250519
  8. PEMBROLIZUMAB [Suspect]
     Active Substance: PEMBROLIZUMAB
     Dosage: 200 MG, CYCLICAL
     Route: 042
     Dates: start: 20250609, end: 20250609
  9. PEMBROLIZUMAB [Suspect]
     Active Substance: PEMBROLIZUMAB
     Dosage: 200 MG, CYCLICAL
     Route: 042
     Dates: start: 20250722, end: 20250722
  10. VALIUM [Concomitant]
     Active Substance: DIAZEPAM
     Indication: Claustrophobia
     Dosage: UNK, UNKNOWN
     Route: 065
     Dates: start: 20250513
  11. DILAUDID [Concomitant]
     Active Substance: HYDROMORPHONE HYDROCHLORIDE
     Indication: Cancer pain
     Dosage: 2 MG, UNKNOWN
     Dates: start: 20250506
  12. TYLENOL [Concomitant]
     Active Substance: ACETAMINOPHEN
     Indication: Headache
     Dosage: UNK, UNKNOWN
     Route: 065
     Dates: start: 20250506
  13. ZOFRAN [Concomitant]
     Active Substance: ONDANSETRON HYDROCHLORIDE
     Indication: Nausea
     Dosage: UNK, UNKNOWN
     Route: 065
     Dates: start: 20250428
  14. GLYCOLAX [Concomitant]
     Active Substance: POLYETHYLENE GLYCOL 3350
     Indication: Constipation
     Dosage: 17 G, UNKNOWN
     Route: 065
     Dates: start: 20250415
  15. COLACE [Concomitant]
     Active Substance: DOCUSATE SODIUM
     Indication: Constipation
     Dosage: UNK, UNKNOWN
     Route: 065
     Dates: start: 20250423
  16. SIMETHICONE (DIMETHICONE) [Concomitant]
     Active Substance: DIMETHICONE
     Indication: Irritable bowel syndrome
     Dosage: UNK, UNKNOWN
     Route: 065
     Dates: start: 20150101
  17. LORATADINE [Concomitant]
     Active Substance: LORATADINE
     Indication: Seasonal allergy
     Dosage: UNK, UNKNOWN
     Route: 065
     Dates: start: 20200101
  18. LIDODERM [Concomitant]
     Active Substance: LIDOCAINE
     Indication: Cancer pain
     Dosage: 4% PATCH
     Route: 065
     Dates: start: 20250331
  19. FOLVITE [Concomitant]
     Active Substance: FOLIC ACID
     Indication: Prophylaxis
     Dosage: UNK, UNKNOWN
     Route: 065
     Dates: start: 20250515
  20. LACTOBACILLUS ACIDOPHILUS [Concomitant]
     Active Substance: LACTOBACILLUS ACIDOPHILUS
     Indication: Irritable bowel syndrome
     Dosage: 1 BILLION CFU, CAPSULE
     Route: 065
     Dates: start: 20200101
  21. VITAMIN B12 [Concomitant]
     Active Substance: CYANOCOBALAMIN
     Indication: Prophylaxis
     Dosage: UNK, UNKNOWN
     Route: 065
     Dates: start: 20250519
  22. HYDROMORPHONE HCL [Concomitant]
     Active Substance: HYDROMORPHONE HYDROCHLORIDE
     Indication: Cancer pain
     Dosage: UNK, UNKNOWN
     Route: 065
     Dates: start: 20250619
  23. ALBUTEROL [Concomitant]
     Active Substance: ALBUTEROL
     Indication: Dyspnoea
     Dosage: UNK, UNKNOWN
     Route: 065
     Dates: start: 20250519
  24. PREDNISONE [Concomitant]
     Active Substance: PREDNISONE
     Indication: Colitis
     Dosage: 50 MG, DAILY
     Route: 048
     Dates: start: 20250628, end: 20250705
  25. PREDNISONE [Concomitant]
     Active Substance: PREDNISONE
     Dosage: 40 MG
     Route: 048
     Dates: start: 20250706, end: 20250708
  26. PREDNISONE [Concomitant]
     Active Substance: PREDNISONE
     Dosage: 30 MG
     Route: 048
     Dates: start: 20250709, end: 20250711
  27. PREDNISONE [Concomitant]
     Active Substance: PREDNISONE
     Dosage: 20 MG
     Route: 048
     Dates: start: 20250712, end: 20250714
  28. PREDNISONE [Concomitant]
     Active Substance: PREDNISONE
     Dosage: 10 MG
     Route: 048
     Dates: start: 20250715, end: 20250717
  29. PREDNISONE [Concomitant]
     Active Substance: PREDNISONE
     Dosage: 5 MG
     Route: 048
     Dates: start: 20250718, end: 20250720
  30. LASIX [Concomitant]
     Active Substance: FUROSEMIDE
     Indication: Oedema peripheral
     Dosage: UNK, UNKNOWN
     Route: 065
     Dates: start: 20250707, end: 20250806

REACTIONS (2)
  - Colitis [Recovered/Resolved]
  - Febrile neutropenia [Recovered/Resolved]

NARRATIVE: CASE EVENT DATE: 20250726
